FAERS Safety Report 4976742-6 (Version None)
Quarter: 2006Q2

REPORT INFORMATION
  Report Type: 
  Country: None (occurrence: None)
  Receive Date: 20060419
  Receipt Date: 20051017
  Transmission Date: 20061013
  Serious: Yes (Hospitalization)
  Sender: FDA-Public Use
  Company Number: US-MERCK-0510USA07757

PATIENT
  Age: 65 Year
  Sex: Female
  Weight: 77 kg

DRUGS (2)
  1. VIOXX [Suspect]
     Indication: GOUT
     Route: 048
     Dates: start: 20031230, end: 20040803
  2. VIOXX [Suspect]
     Indication: ARTHRITIS
     Route: 048
     Dates: start: 20031230, end: 20040803

REACTIONS (10)
  - ACUTE MYOCARDIAL INFARCTION [None]
  - ARTERIOSCLEROSIS CORONARY ARTERY [None]
  - BRONCHITIS ACUTE [None]
  - BUNDLE BRANCH BLOCK LEFT [None]
  - CARDIAC FAILURE CONGESTIVE [None]
  - CHEST PAIN [None]
  - CHRONIC OBSTRUCTIVE PULMONARY DISEASE [None]
  - CORONARY ARTERY DISEASE [None]
  - RENAL FAILURE [None]
  - URINARY TRACT INFECTION [None]
